FAERS Safety Report 5793102-9 (Version None)
Quarter: 2008Q2

REPORT INFORMATION
  Report Type: 
  Country: None (occurrence: None)
  Receive Date: 20080627
  Receipt Date: 20080618
  Transmission Date: 20081010
  Serious: Yes (Other)
  Sender: FDA-Public Use
  Company Number: DE-JNJFOC-20080505132

PATIENT
  Age: 50 Year
  Sex: Female

DRUGS (8)
  1. REMICADE [Suspect]
     Dosage: 4TH OR 5TH INFUSION
     Route: 042
  2. REMICADE [Suspect]
     Route: 042
  3. REMICADE [Suspect]
     Route: 042
  4. REMICADE [Suspect]
     Indication: PSORIASIS
     Route: 042
  5. PRINZIDE [Concomitant]
  6. PREDNISOLONE [Concomitant]
     Indication: PREMEDICATION
  7. CLEMASTINE FUMARATE [Concomitant]
     Indication: PREMEDICATION
  8. ACETAMINOPHEN [Concomitant]
     Indication: PREMEDICATION

REACTIONS (9)
  - BACK PAIN [None]
  - CHILLS [None]
  - CONJUNCTIVAL IRRITATION [None]
  - DYSPNOEA [None]
  - ERYTHEMA [None]
  - FLUSHING [None]
  - HYPERTENSION [None]
  - INFUSION RELATED REACTION [None]
  - SEPSIS [None]
